FAERS Safety Report 17393581 (Version 1)
Quarter: 2020Q1

REPORT INFORMATION
  Report Type: Spontaneous
  Country: FR (occurrence: FR)
  Receive Date: 20200208
  Receipt Date: 20200208
  Transmission Date: 20200409
  Serious: Yes (Hospitalization, Other)
  Sender: FDA-Public Use
  Company Number: NVSC2020FR032718

PATIENT
  Age: 78 Year
  Sex: Female

DRUGS (12)
  1. ECONAZOLE. [Suspect]
     Active Substance: ECONAZOLE NITRATE
     Indication: INTERTRIGO
     Dosage: UNK
     Route: 003
     Dates: start: 20191220, end: 20200102
  2. MIANSERINE [Concomitant]
     Active Substance: MIANSERIN HYDROCHLORIDE
     Indication: PRODUCT USED FOR UNKNOWN INDICATION
     Dosage: UNK
     Route: 065
  3. DERMOVAL [CLOBETASOL PROPIONATE] [Suspect]
     Active Substance: CLOBETASOL PROPIONATE
     Indication: INTERTRIGO
     Dosage: UNK
     Route: 003
     Dates: start: 20191206, end: 20191220
  4. COLECALCIFEROL [Concomitant]
     Active Substance: CHOLECALCIFEROL
     Indication: PRODUCT USED FOR UNKNOWN INDICATION
     Dosage: UNK
     Route: 065
  5. FONX [Suspect]
     Active Substance: OXICONAZOLE NITRATE
     Indication: INTERTRIGO
     Dosage: UNK
     Route: 003
     Dates: start: 20191206, end: 20191220
  6. INFLU KOVAX [Concomitant]
     Indication: PRODUCT USED FOR UNKNOWN INDICATION
     Dosage: UNK
     Route: 065
  7. VOLTARENE (DICLOFENAC SODIUM) [Suspect]
     Active Substance: DICLOFENAC SODIUM
     Indication: INTERTRIGO
     Dosage: UNK
     Route: 003
     Dates: start: 20191225, end: 20191225
  8. NOCTAMIDE [Concomitant]
     Active Substance: LORMETAZEPAM
     Indication: PRODUCT USED FOR UNKNOWN INDICATION
     Dosage: UNK
     Route: 065
  9. LEVOCETIRIZINE DIHYDROCHLORIDE. [Suspect]
     Active Substance: LEVOCETIRIZINE DIHYDROCHLORIDE
     Indication: INTERTRIGO
     Dosage: 5 MG, QD
     Route: 003
     Dates: start: 20191220, end: 20200102
  10. BROMAZEPAM [Concomitant]
     Active Substance: BROMAZEPAM
     Indication: PRODUCT USED FOR UNKNOWN INDICATION
     Dosage: UNK
     Route: 065
  11. SERTRALINE ACTAVIS [Concomitant]
     Active Substance: SERTRALINE HYDROCHLORIDE
     Indication: PRODUCT USED FOR UNKNOWN INDICATION
     Dosage: UNK
     Route: 065
  12. FORTZAAR [Concomitant]
     Active Substance: HYDROCHLOROTHIAZIDE\LOSARTAN POTASSIUM
     Indication: PRODUCT USED FOR UNKNOWN INDICATION
     Dosage: UNK
     Route: 065

REACTIONS (3)
  - General physical health deterioration [Recovered/Resolved]
  - Skin exfoliation [Recovered/Resolved]
  - Dermatitis exfoliative generalised [Recovered/Resolved]

NARRATIVE: CASE EVENT DATE: 20200102
